FAERS Safety Report 8533001-2 (Version None)
Quarter: 2012Q2

REPORT INFORMATION
  Report Type: 
  Country: None (occurrence: None)
  Receive Date: 20120412
  Receipt Date: 20091123
  Transmission Date: 20120825
  Serious: Yes (Other)
  Sender: FDA-Public Use
  Company Number: PHEH2009US16996

PATIENT
  Age: 64 Year
  Sex: Female

DRUGS (23)
  1. DYAZIDE [Suspect]
     Indication: MENIERE'S DISEASE
     Dosage: UNK
     Dates: start: 20030101
  2. LOVASTATIN [Concomitant]
  3. PROVERA [Suspect]
     Indication: MENOPAUSE
     Dosage: 2.5 MG, UNK
     Dates: start: 19850101, end: 20070801
  4. TESTIM [Suspect]
     Indication: MENOPAUSE
     Dosage: UNK
     Dates: start: 20060810, end: 20070801
  5. ESTRATEST [Suspect]
     Indication: MENOPAUSE
     Dosage: 1.25 MG, UNK
     Dates: start: 20001227, end: 20070801
  6. INDERAL [Suspect]
     Indication: CARDIAC DISORDER
     Dosage: UNK
     Dates: start: 20030101
  7. INDERAL [Suspect]
     Indication: MIGRAINE
     Dosage: UNK
     Dates: start: 20030101
  8. ACYCLOVIR [Concomitant]
  9. CLONAZEPAM [Concomitant]
  10. CARDIZEM [Concomitant]
  11. SOMA [Concomitant]
  12. ESTALIS COMBIPATCH (ESTRADIOL, NORETHISTERONE ACETATE) UNKNOWN [Suspect]
     Indication: MENOPAUSE
     Dosage: 14 MG, UNK, TRANSDERMAL
     Route: 062
     Dates: start: 20010706, end: 20050501
  13. MEDROXYPROGESTERONE ACETATE [Suspect]
     Dosage: UNK
     Dates: end: 20070326
  14. CLIMARA PRO [Suspect]
     Indication: MENOPAUSE
     Dates: start: 20061108, end: 20070801
  15. HYDROCODONE W/APAP (HYDROCODONE, PARACETAMOL) [Concomitant]
  16. ESTRADIOL CYPIONATE [Suspect]
     Indication: MENOPAUSE
     Dosage: UNK
     Dates: start: 20010404, end: 20010601
  17. ASPIRIN [Concomitant]
  18. PROMETHAZINE [Concomitant]
  19. OXYCODONE HCL [Concomitant]
  20. FENTANYL [Concomitant]
  21. ESTRACE [Suspect]
     Indication: MENOPAUSE
     Dosage: 2.MG, UNK
     Dates: start: 19850101, end: 20040923
  22. CARISOPRODOL [Concomitant]
  23. TRAZODONE HCL [Concomitant]

REACTIONS (15)
  - MASTECTOMY [None]
  - NAUSEA [None]
  - CARDIAC DISORDER [None]
  - BLOOD CHOLESTEROL INCREASED [None]
  - ANXIETY [None]
  - TREMOR [None]
  - BREAST CANCER [None]
  - DEPRESSION [None]
  - BREAST MASS [None]
  - CEREBROVASCULAR ACCIDENT [None]
  - HERPES VIRUS INFECTION [None]
  - MIGRAINE [None]
  - MENIERE'S DISEASE [None]
  - PAIN [None]
  - BREAST RECONSTRUCTION [None]
